FAERS Safety Report 4479998-1 (Version None)
Quarter: 2004Q4

REPORT INFORMATION
  Report Type: 
  Country: None (occurrence: None)
  Receive Date: 20041018
  Receipt Date: 20041001
  Transmission Date: 20050328
  Serious: Yes (Other)
  Sender: FDA-Public Use
  Company Number: CEL-2004-01639-ROC

PATIENT
  Age: 7 Decade
  Sex: Female

DRUGS (1)
  1. DIPENTUM [Suspect]

REACTIONS (2)
  - ANAEMIA [None]
  - RENAL FAILURE [None]
